FAERS Safety Report 9442682 (Version 1)
Quarter: 2013Q3

REPORT INFORMATION
  Report Type: Report from Study
  Country: KR (occurrence: KR)
  Receive Date: 20130806
  Receipt Date: 20130806
  Transmission Date: 20140515
  Serious: Yes (Death)
  Sender: FDA-Public Use
  Company Number: KR-SANOFI-AVENTIS-2013SA075999

PATIENT
  Age: 51 Year
  Sex: Male
  Weight: 60 kg

DRUGS (2)
  1. LANTUS [Suspect]
     Indication: DIABETES MELLITUS
     Dosage: DOSE:14 UNIT(S)
     Route: 058
  2. APIDRA [Suspect]
     Indication: DIABETES MELLITUS
     Dosage: STRENGTH: 100 IU/ML?DOSE:3-0-3 UNIT DOSE:3 UNIT(S)
     Route: 058

REACTIONS (1)
  - Pancreatic carcinoma [Fatal]
